FAERS Safety Report 8050703-5 (Version None)
Quarter: 2012Q1

REPORT INFORMATION
  Report Type: 
  Country: None (occurrence: None)
  Receive Date: 20120117
  Receipt Date: 20120117
  Transmission Date: 20120608
  Serious: Yes (Life-Threatening, Other)
  Sender: FDA-Public Use
  Company Number: None

PATIENT
  Age: 43 Year
  Sex: Female
  Weight: 47.173 kg

DRUGS (1)
  1. ALPRAZOLAM [Suspect]
     Indication: ANXIETY
     Dosage: 2MG
     Route: 048

REACTIONS (10)
  - TIC [None]
  - INSOMNIA [None]
  - WITHDRAWAL SYNDROME [None]
  - LOSS OF CONSCIOUSNESS [None]
  - DYSKINESIA [None]
  - PARANOIA [None]
  - TREMOR [None]
  - PALPITATIONS [None]
  - AGORAPHOBIA [None]
  - ROAD TRAFFIC ACCIDENT [None]
